FAERS Safety Report 9845532 (Version 1)
Quarter: 2014Q1

REPORT INFORMATION
  Report Type: Spontaneous
  Country: US (occurrence: None)
  Receive Date: 20140123
  Receipt Date: 20140123
  Transmission Date: 20141002
  Serious: Yes (Hospitalization)
  Sender: FDA-Public Use
  Company Number: 1713747-2014-99903

PATIENT
  Sex: Male

DRUGS (1)
  1. DELFLEX [Suspect]

REACTIONS (3)
  - Chest pain [None]
  - Respiratory disorder [None]
  - Cardiac disorder [None]
